FAERS Safety Report 5348148-1 (Version None)
Quarter: 2007Q2

REPORT INFORMATION
  Report Type: 
  Country: None (occurrence: None)
  Receive Date: 20070606
  Receipt Date: 20070524
  Transmission Date: 20071010
  Serious: Yes (Other)
  Sender: FDA-Public Use
  Company Number: US-SHR-US-2007-006384

PATIENT
  Age: 31 Year
  Sex: Male
  Weight: 44.444 kg

DRUGS (17)
  1. MAGNEVIST [Suspect]
     Dosage: 20 ML, 1 DOSE
     Route: 042
     Dates: start: 20030429, end: 20030429
  2. KLONOPIN [Concomitant]
  3. RENAGEL [Concomitant]
     Dosage: 1600 MG, 3X/DAY
     Route: 048
  4. ACETAMINOPHEN [Concomitant]
  5. ATIVAN [Concomitant]
  6. CENTRUM [Concomitant]
  7. EPOGEN [Concomitant]
     Dosage: 5000 UNK, 3X/WEEK
  8. FLORINEF ACETATE [Concomitant]
  9. NEPHROCAPS [Concomitant]
  10. NEURONTIN [Concomitant]
     Dosage: 100 MG, BED T.
     Route: 048
  11. PREVACID [Concomitant]
     Dosage: 30 MG, 1X/DAY
     Route: 048
  12. TEGRETOL [Concomitant]
  13. TYLENOL W/ CODEINE [Concomitant]
  14. DIOVAN [Concomitant]
  15. COVERA-HS [Concomitant]
  16. PHOSLO [Concomitant]
  17. ULTRAVIST (PHARMACY BULK) [Concomitant]
     Dosage: 80 ML, 1 DOSE

REACTIONS (1)
  - NEPHROGENIC FIBROSING DERMOPATHY [None]
